FAERS Safety Report 9933354 (Version 1)
Quarter: 2014Q1

REPORT INFORMATION
  Report Type: Report from Study
  Country: US (occurrence: US)
  Receive Date: 20140228
  Receipt Date: 20140228
  Transmission Date: 20141002
  Serious: No
  Sender: FDA-Public Use
  Company Number: US-MYLANLABS-2013S1006351

PATIENT
  Age: 24 Year
  Sex: Female

DRUGS (3)
  1. AMNESTEEM CAPSULES [Suspect]
     Indication: ACNE
     Dosage: TAKING 60MG (20MG AND 40MG) QD.
     Route: 048
     Dates: end: 20130318
  2. AMNESTEEM CAPSULES [Suspect]
     Indication: ACNE
     Dosage: TAKING 60MG (20MG AND 40MG) DAILY.
     Route: 048
     Dates: end: 20130318
  3. CLARAVIS [Suspect]
     Indication: ACNE

REACTIONS (1)
  - Depression [Not Recovered/Not Resolved]
